FAERS Safety Report 17153931 (Version 3)
Quarter: 2020Q1

REPORT INFORMATION
  Report Type: Spontaneous
  Country: US (occurrence: US)
  Receive Date: 20191213
  Receipt Date: 20200204
  Transmission Date: 20200409
  Serious: No
  Sender: FDA-Public Use
  Company Number: US-009507513-1912USA006647

PATIENT
  Age: 26 Year
  Sex: Female
  Weight: 56.69 kg

DRUGS (2)
  1. NEXPLANON [Suspect]
     Active Substance: ETONOGESTREL
     Dosage: 1 IMPLANT EVERY 3 YEARS, INSERTED IN THE LEFT ARM
     Route: 059
     Dates: start: 20191212
  2. NEXPLANON [Suspect]
     Active Substance: ETONOGESTREL
     Dosage: 1 IMPLANT EVERY 3 YEARS. INSERTED IN THE LEFT ARM
     Route: 059
     Dates: start: 20191212, end: 20191212

REACTIONS (5)
  - Complication of device insertion [Recovering/Resolving]
  - Complication associated with device [Recovering/Resolving]
  - Device difficult to use [Recovering/Resolving]
  - Respiratory symptom [Unknown]
  - Product quality issue [Unknown]

NARRATIVE: CASE EVENT DATE: 20191212
